FAERS Safety Report 5608524-6 (Version None)
Quarter: 2008Q1

REPORT INFORMATION
  Report Type: 
  Country: None (occurrence: None)
  Receive Date: 20080130
  Receipt Date: 20080121
  Transmission Date: 20080703
  Serious: Yes (Death)
  Sender: FDA-Public Use
  Company Number: PFIZER INC-2008008039

PATIENT
  Age: 50 Year
  Sex: Female

DRUGS (4)
  1. ZELDOX (CAPSULES) [Suspect]
     Indication: SCHIZOPHRENIA, PARANOID TYPE
     Route: 048
  2. CHLORPROTHIXENE [Concomitant]
     Route: 048
  3. SERTRALINE [Concomitant]
     Route: 048
  4. CLONAZEPAM [Concomitant]
     Dosage: DAILY DOSE:2MG

REACTIONS (1)
  - SUDDEN DEATH [None]
